FAERS Safety Report 6259994-4 (Version None)
Quarter: 2009Q3

REPORT INFORMATION
  Report Type: 
  Country: None (occurrence: None)
  Receive Date: 20090708
  Receipt Date: 20090626
  Transmission Date: 20100115
  Serious: Yes (Death)
  Sender: FDA-Public Use
  Company Number: CN-PFIZER INC-2009231301

PATIENT

DRUGS (3)
  1. ZYVOX [Suspect]
     Indication: PNEUMONIA
     Dosage: 600 MG, 2X/DAY
     Route: 042
     Dates: start: 20090601, end: 20090601
  2. TIENAM [Concomitant]
  3. DIFLUCAN [Concomitant]

REACTIONS (2)
  - CARDIAC FAILURE [None]
  - PYREXIA [None]
